FAERS Safety Report 5342191-4 (Version None)
Quarter: 2007Q2

REPORT INFORMATION
  Report Type: 
  Country: None (occurrence: None)
  Receive Date: 20070601
  Receipt Date: 20070531
  Transmission Date: 20071010
  Serious: Yes (Other)
  Sender: FDA-Public Use
  Company Number: B0473277A

PATIENT
  Age: 6 Year
  Sex: Male

DRUGS (2)
  1. CLAMOXYL [Suspect]
     Route: 048
     Dates: start: 20070101
  2. DRUG EXCIPIENTS [Suspect]
     Route: 048
     Dates: start: 20070101

REACTIONS (2)
  - ANGIOEDEMA [None]
  - URTICARIA [None]
